FAERS Safety Report 8914527 (Version 5)
Quarter: 2014Q2

REPORT INFORMATION
  Report Type: Spontaneous
  Country: US (occurrence: US)
  Receive Date: 20121119
  Receipt Date: 20140425
  Transmission Date: 20141212
  Serious: Yes (Hospitalization, Disabling, Other)
  Sender: FDA-Public Use
  Company Number: US-009507513-1211USA006905

PATIENT
  Sex: Female
  Weight: 114.5 kg

DRUGS (6)
  1. FOSAMAX [Suspect]
     Indication: OSTEOPENIA
     Dosage: 35 MG, UNK
     Route: 048
     Dates: start: 20010626
  2. FOSAMAX [Suspect]
     Dosage: 70 MG, QW
     Route: 048
     Dates: start: 20040514
  3. FOSAMAX PLUS D [Suspect]
     Dosage: 70MG/2800UNITS QW
     Route: 048
     Dates: start: 20060519
  4. FOSAMAX [Suspect]
     Route: 048
  5. ESTROSTEP FE [Concomitant]
     Indication: MENOPAUSE
     Dosage: 1MG-35MCG QD
     Route: 048
     Dates: start: 20040507
  6. PROMETRIUM [Concomitant]
     Dosage: 200 MG, QD
     Route: 048
     Dates: start: 20040514

REACTIONS (32)
  - Femur fracture [Recovered/Resolved]
  - Intramedullary rod insertion [Unknown]
  - Carpal tunnel syndrome [Unknown]
  - Spinal fusion surgery [Unknown]
  - Spinal fusion surgery [Unknown]
  - Surgery [Unknown]
  - Foot fracture [Unknown]
  - Foot fracture [Unknown]
  - Foot fracture [Unknown]
  - Vaginal haemorrhage [Unknown]
  - Vaginal infection [Unknown]
  - Uterine polyp [Unknown]
  - Uterine leiomyoma [Unknown]
  - Type 2 diabetes mellitus [Unknown]
  - Sleep apnoea syndrome [Unknown]
  - Hyperlipidaemia [Unknown]
  - Osteoporosis [Unknown]
  - Road traffic accident [Unknown]
  - Atrophic vulvovaginitis [Unknown]
  - Vaginal discharge [Unknown]
  - Intervertebral disc protrusion [Unknown]
  - Diverticulitis [Unknown]
  - Spondylolisthesis [Unknown]
  - Lumbar spinal stenosis [Unknown]
  - Paraesthesia [Unknown]
  - Neuropathy peripheral [Not Recovered/Not Resolved]
  - Osteoarthritis [Not Recovered/Not Resolved]
  - Medical device pain [Unknown]
  - Osteoarthritis [Not Recovered/Not Resolved]
  - Nausea [Recovered/Resolved]
  - Myalgia [Unknown]
  - Muscle spasms [Unknown]
